FAERS Safety Report 8965117 (Version 2)
Quarter: 2013Q1

REPORT INFORMATION
  Report Type: Spontaneous
  Country: IT (occurrence: IT)
  Receive Date: 20121214
  Receipt Date: 20121217
  Transmission Date: 20140127
  Serious: Yes (Death, Life-Threatening)
  Sender: FDA-Public Use
  Company Number: IT-ASTRAZENECA-2012SE90518

PATIENT
  Age: 27514 Day
  Sex: Male
  Weight: 85 kg

DRUGS (10)
  1. BRILIQUE [Suspect]
     Indication: ANGINA UNSTABLE
     Route: 048
     Dates: start: 20121126, end: 20121128
  2. ASPIRIN [Concomitant]
     Dates: start: 20121126
  3. COUMADIN [Concomitant]
     Indication: ATRIAL FIBRILLATION
     Dosage: DOSAGE TITRATED ACCORDING TO INR
  4. HEPARIN [Concomitant]
     Indication: CORONARY ANGIOPLASTY
  5. CARDIOASPIRIN [Concomitant]
  6. KONAKION [Concomitant]
     Dosage: 10 MG/ML
  7. KONAKION [Concomitant]
     Dosage: 10 MG/ML
     Route: 048
  8. COVERSYL [Concomitant]
     Indication: ATRIAL FIBRILLATION
  9. CONGESCOR [Concomitant]
     Indication: ATRIAL FIBRILLATION
  10. VITAMIN K [Concomitant]
     Route: 042

REACTIONS (5)
  - Cerebral haemorrhage [Fatal]
  - Coma [Fatal]
  - Malignant hypertension [Unknown]
  - Angina unstable [Fatal]
  - Respiratory failure [Fatal]
